FAERS Safety Report 12236147 (Version 1)
Quarter: 2016Q2

REPORT INFORMATION
  Report Type: Spontaneous
  Country: BR (occurrence: BR)
  Receive Date: 20160404
  Receipt Date: 20160404
  Transmission Date: 20160815
  Serious: Yes (Other)
  Sender: FDA-Public Use
  Company Number: BR-PFIZER INC-2016183558

PATIENT
  Sex: Female

DRUGS (1)
  1. LYRICA [Suspect]
     Active Substance: PREGABALIN
     Indication: FIBROMYALGIA
     Dosage: 75 MG, DAILY

REACTIONS (13)
  - Feeling abnormal [Unknown]
  - Impaired driving ability [Unknown]
  - Pain [Unknown]
  - Nausea [Unknown]
  - Aphasia [Unknown]
  - Oral discomfort [Unknown]
  - Decreased appetite [Unknown]
  - Aphthous ulcer [Unknown]
  - Abasia [Unknown]
  - Arthralgia [Unknown]
  - Sensory disturbance [Unknown]
  - Retching [Unknown]
  - Neck pain [Unknown]
